FAERS Safety Report 21536303 (Version 1)
Quarter: 2022Q4

REPORT INFORMATION
  Report Type: Spontaneous
  Country: US (occurrence: None)
  Receive Date: 20221101
  Receipt Date: 20221101
  Transmission Date: 20230112
  Serious: No
  Sender: FDA-Public Use
  Company Number: 2022A341056

PATIENT
  Sex: Female

DRUGS (1)
  1. PULMICORT FLEXHALER [Suspect]
     Active Substance: BUDESONIDE
     Indication: Asthma
     Route: 055

REACTIONS (8)
  - COVID-19 [Unknown]
  - Ageusia [Unknown]
  - Anosmia [Unknown]
  - Asthma [Unknown]
  - Device malfunction [Unknown]
  - Product use issue [Unknown]
  - Drug dose omission by device [Unknown]
  - Drug ineffective [Unknown]
